FAERS Safety Report 8375968-1 (Version None)
Quarter: 2012Q2

REPORT INFORMATION
  Report Type: 
  Country: None (occurrence: None)
  Receive Date: 20120517
  Receipt Date: 20120507
  Transmission Date: 20120825
  Serious: Yes (Other)
  Sender: FDA-Public Use
  Company Number: 2012MA003254

PATIENT
  Age: 75 Year
  Sex: Male

DRUGS (13)
  1. WARFARIN SODIUM [Suspect]
     Indication: ATRIAL FIBRILLATION
  2. SPIRIVA [Concomitant]
  3. RAMIPRIL [Suspect]
     Dosage: 5 MG;QD
  4. FUROSEMIDE [Suspect]
  5. FORMOTEROL FUMARATE [Suspect]
     Dosage: INH
     Route: 055
  6. ALBUTEROL SULFATE [Suspect]
  7. PREDNISOLONE [Suspect]
     Indication: CHRONIC OBSTRUCTIVE PULMONARY DISEASE
  8. VERAPAMIL [Suspect]
     Indication: ATRIAL FIBRILLATION
  9. FORMOTEROL FUMARATE [Suspect]
  10. SYMBICORT [Concomitant]
  11. CYSTEINE HYDROCHLORIDE [Suspect]
  12. ATORVASTATIN [Suspect]
  13. METFORMIN HYDROCHLORIDE [Suspect]

REACTIONS (1)
  - HALLUCINATION [None]
